FAERS Safety Report 12796721 (Version 1)
Quarter: 2016Q3

REPORT INFORMATION
  Report Type: Spontaneous
  Country: NL (occurrence: NL)
  Receive Date: 20160929
  Receipt Date: 20160929
  Transmission Date: 20161109
  Serious: Yes (Other)
  Sender: FDA-Public Use
  Company Number: NL-PFIZER INC-2016453115

PATIENT
  Age: 56 Year
  Sex: Female

DRUGS (5)
  1. CHAMPIX [Suspect]
     Active Substance: VARENICLINE TARTRATE
     Indication: SMOKING CESSATION THERAPY
     Dosage: 0.5 MG, 2X/DAY
     Route: 048
     Dates: start: 20160827, end: 20160901
  2. OXYCODON [Interacting]
     Active Substance: OXYCODONE
     Indication: PAIN
     Dosage: 1 DF, UNK
     Route: 048
     Dates: start: 2015
  3. CHAMPIX [Interacting]
     Active Substance: VARENICLINE TARTRATE
     Dosage: 1 MG, 2X/DAY
     Route: 048
     Dates: start: 20160902, end: 20160902
  4. MORFINE [Interacting]
     Active Substance: MORPHINE
     Indication: PAIN
     Dosage: 1 DF, UNK
     Route: 062
     Dates: start: 2015
  5. DICLOFENAC [Interacting]
     Active Substance: DICLOFENAC
     Indication: PAIN
     Dosage: 1 DF, UNK
     Route: 065
     Dates: start: 2015

REACTIONS (5)
  - Dizziness [Recovered/Resolved]
  - Drug interaction [Recovered/Resolved]
  - Syncope [Recovered/Resolved]
  - Malaise [Recovered/Resolved]
  - Blood pressure decreased [Recovered/Resolved]

NARRATIVE: CASE EVENT DATE: 20160903
